FAERS Safety Report 4804592-X (Version None)
Quarter: 2005Q4

REPORT INFORMATION
  Report Type: 
  Country: None (occurrence: None)
  Receive Date: 20051020
  Receipt Date: 20051011
  Transmission Date: 20060501
  Serious: Yes (Other)
  Sender: FDA-Public Use
  Company Number: 2005AP05352

PATIENT
  Age: 65 Year

DRUGS (1)
  1. ANAPEINE [Suspect]
     Indication: EPIDURAL ANAESTHESIA
     Route: 008

REACTIONS (1)
  - HEPATIC FUNCTION ABNORMAL [None]
